FAERS Safety Report 8959196 (Version 1)
Quarter: 2012Q4

REPORT INFORMATION
  Report Type: 
  Country: US (occurrence: US)
  Receive Date: 20121211
  Receipt Date: 20121211
  Transmission Date: 20130627
  Serious: No
  Sender: FDA-Public Use
  Company Number: US-BAUSCH-2012BL002216

PATIENT
  Sex: Female

DRUGS (1)
  1. TOBRAMYCIN AND DEXAMETHASONE [Suspect]
     Indication: EYE INFECTION
     Route: 047
     Dates: start: 20120305

REACTIONS (2)
  - Drug effect incomplete [Not Recovered/Not Resolved]
  - Eye discharge [Not Recovered/Not Resolved]
